FAERS Safety Report 4615902-0 (Version None)
Quarter: 2005Q1

REPORT INFORMATION
  Report Type: 
  Country: None (occurrence: None)
  Receive Date: 20050318
  Receipt Date: 20050307
  Transmission Date: 20050727
  Serious: Yes (Death)
  Sender: FDA-Public Use
  Company Number: VISP-NO-0502S-0074

PATIENT
  Age: 63 Year
  Sex: Female
  Weight: 40 kg

DRUGS (5)
  1. VISIPAQUE [Suspect]
     Indication: BILE DUCT STONE
     Dosage: 40 ML, SINGLE DOSE, INTRADUCTAL
     Dates: start: 20020906, end: 20020906
  2. CEFOPERAZONE SODIUM, SULBACTAM SODIUM (SULPERAZON) [Concomitant]
  3. GABEXATE MESILATE (FOY) [Concomitant]
  4. GLUCOSE, SODIUM ACETATE, CALCIUM GLUCONATE, POTASSIUM CHL (PHYSIO 35) [Concomitant]
  5. GLUCOSE, AMINO ACIDS, ELECTROLYTES (AMINOFLUID) [Concomitant]

REACTIONS (2)
  - PANCREATITIS [None]
  - POST PROCEDURAL COMPLICATION [None]
